FAERS Safety Report 25453620 (Version 1)
Quarter: 2025Q2

REPORT INFORMATION
  Report Type: Spontaneous
  Country: US (occurrence: US)
  Receive Date: 20250619
  Receipt Date: 20250619
  Transmission Date: 20250717
  Serious: Yes (Hospitalization)
  Sender: ROCHE
  Company Number: US-ROCHE-10000313031

PATIENT
  Sex: Female

DRUGS (38)
  1. XOLAIR [Suspect]
     Active Substance: OMALIZUMAB
     Indication: Asthma
     Route: 058
  2. PYRIDOXINE HYDROCHLORIDE [Concomitant]
     Active Substance: PYRIDOXINE HYDROCHLORIDE
  3. BIOTIN [Concomitant]
     Active Substance: BIOTIN
  4. BISOPROLOL [Concomitant]
     Active Substance: BISOPROLOL
  5. CYANOCOBALAMIN [Concomitant]
     Active Substance: CYANOCOBALAMIN
  6. HERBALS [Concomitant]
     Active Substance: HERBALS
  7. FOLIC ACID [Concomitant]
     Active Substance: FOLIC ACID
  8. HYDROCODONE [Concomitant]
     Active Substance: HYDROCODONE
  9. LATANOPROST [Concomitant]
     Active Substance: LATANOPROST
  10. MAGNESIUM [Concomitant]
     Active Substance: MAGNESIUM
  11. MECLIZINE HC [Concomitant]
  12. VITAMINS [Concomitant]
     Active Substance: VITAMINS
  13. OZEMPIC [Concomitant]
     Active Substance: SEMAGLUTIDE
  14. PANTOPRAZOLE [Concomitant]
     Active Substance: PANTOPRAZOLE
  15. RIZATRIPTAN [Concomitant]
     Active Substance: RIZATRIPTAN
  16. HERBALS\TURMERIC [Concomitant]
     Active Substance: HERBALS\TURMERIC
  17. VENTOLIN [Concomitant]
     Active Substance: ALBUTEROL SULFATE
  18. VITAMIN D3 [Concomitant]
     Active Substance: CHOLECALCIFEROL
  19. WIXELA INHUB [Concomitant]
     Active Substance: FLUTICASONE PROPIONATE\SALMETEROL XINAFOATE
  20. XARELTO [Concomitant]
     Active Substance: RIVAROXABAN
  21. POTASSIUM CHLORIDE [Concomitant]
     Active Substance: POTASSIUM CHLORIDE
  22. OMEPRAZOLE [Concomitant]
     Active Substance: OMEPRAZOLE
  23. PRENATAL PLUS [Concomitant]
     Active Substance: .ALPHA.-TOCOPHEROL ACETATE, DL-\.BETA.-CAROTENE\ASCORBIC ACID\CALCIUM CARBONATE\CHOLECALCIFEROL\CUPR
  24. MONTELUKAST SODIUM [Concomitant]
     Active Substance: MONTELUKAST SODIUM
  25. PROAIR HEA [Concomitant]
  26. TRAZODONE HCL [Concomitant]
     Active Substance: TRAZODONE HYDROCHLORIDE
  27. TORSEMIDE [Concomitant]
     Active Substance: TORSEMIDE
  28. ALLOPURINOL [Concomitant]
     Active Substance: ALLOPURINOL
  29. BUMETANIDE [Concomitant]
     Active Substance: BUMETANIDE
  30. CRESTOR [Concomitant]
     Active Substance: ROSUVASTATIN CALCIUM
  31. DULERA [Concomitant]
     Active Substance: FORMOTEROL FUMARATE DIHYDRATE\MOMETASONE FUROATE
  32. ROPINIROLE HYDROCHLORIDE [Concomitant]
     Active Substance: ROPINIROLE HYDROCHLORIDE
  33. CYMBALTA [Concomitant]
     Active Substance: DULOXETINE HYDROCHLORIDE
  34. SPIRONOLACTONE [Concomitant]
     Active Substance: SPIRONOLACTONE
  35. METHOCARBAMOL [Concomitant]
     Active Substance: METHOCARBAMOL
  36. GABAPENTIN [Concomitant]
     Active Substance: GABAPENTIN
  37. IPRATROPIUM BROMIDE [Concomitant]
     Active Substance: IPRATROPIUM BROMIDE
  38. TRIAMCINOLONE ACETONIDE [Concomitant]
     Active Substance: TRIAMCINOLONE ACETONIDE

REACTIONS (1)
  - Dyspnoea [Unknown]
